FAERS Safety Report 12684406 (Version 5)
Quarter: 2017Q1

REPORT INFORMATION
  Report Type: Report from Study
  Country: US (occurrence: US)
  Receive Date: 20160825
  Receipt Date: 20170130
  Transmission Date: 20170428
  Serious: Yes (Hospitalization, Other)
  Sender: FDA-Public Use
  Company Number: US-AEGERION PHARMACEUTICAL INC.-AEGR002387

PATIENT
  Age: 14 Year
  Sex: Female
  Weight: 46.1 kg

DRUGS (8)
  1. METRELEPTIN [Suspect]
     Active Substance: METRELEPTIN
     Dosage: 3 MG, QD
     Route: 058
     Dates: start: 20160202, end: 20160313
  2. VITAMIN D3 [Concomitant]
     Active Substance: CHOLECALCIFEROL
     Indication: VITAMIN D DEFICIENCY
     Dosage: 1000 IU, QD
     Route: 048
  3. METRELEPTIN [Suspect]
     Active Substance: METRELEPTIN
     Indication: NON-ALCOHOLIC STEATOHEPATITIS
     Dosage: 3 MG, QD
     Route: 058
     Dates: start: 20141127, end: 20150313
  4. METRELEPTIN [Suspect]
     Active Substance: METRELEPTIN
     Dosage: 3.75 MG, QD
     Route: 058
     Dates: start: 20150314, end: 20160201
  5. METRELEPTIN [Suspect]
     Active Substance: METRELEPTIN
     Dosage: 1.25 MG, QD
     Route: 058
     Dates: start: 20160901, end: 20160905
  6. METRELEPTIN [Suspect]
     Active Substance: METRELEPTIN
     Dosage: 2.5 MG, QD
     Route: 058
     Dates: start: 20160829, end: 20160831
  7. METRELEPTIN [Suspect]
     Active Substance: METRELEPTIN
     Indication: LIPODYSTROPHY ACQUIRED
     Dosage: 2.5 MG, QD
     Route: 058
     Dates: start: 20140821, end: 20141126
  8. METRELEPTIN [Suspect]
     Active Substance: METRELEPTIN
     Dosage: 3.75 MG, QD
     Route: 058
     Dates: start: 20160314, end: 20160828

REACTIONS (3)
  - Type 1 diabetes mellitus [Recovered/Resolved]
  - Neutralising antibodies positive [Not Recovered/Not Resolved]
  - Hypertriglyceridaemia [Not Recovered/Not Resolved]

NARRATIVE: CASE EVENT DATE: 20160129
